FAERS Safety Report 15982811 (Version 2)
Quarter: 2019Q1

REPORT INFORMATION
  Report Type: Report from Study
  Country: KR (occurrence: KR)
  Receive Date: 20190219
  Receipt Date: 20190225
  Transmission Date: 20190418
  Serious: Yes (Hospitalization)
  Sender: FDA-Public Use
  Company Number: KR-PFIZER INC-2019062858

PATIENT
  Age: 63 Year
  Sex: Male
  Weight: 70.8 kg

DRUGS (30)
  1. PANCREATIN [Concomitant]
     Active Substance: PANCRELIPASE
     Dosage: UNK
     Dates: start: 20180207
  2. ONDANSETRON [Concomitant]
     Active Substance: ONDANSETRON
     Dosage: UNK
     Dates: start: 20180302, end: 20180404
  3. PEGILODECAKIN [Suspect]
     Active Substance: PEGILODECAKIN
     Indication: PANCREATIC CARCINOMA METASTATIC
     Dosage: 0.4 MG, CYCLICAL
     Route: 058
     Dates: start: 20180207, end: 20180330
  4. SITAGLIPTIN [Concomitant]
     Active Substance: SITAGLIPTIN
     Dosage: UNK
     Dates: start: 20180221
  5. APREPITANT. [Concomitant]
     Active Substance: APREPITANT
     Dosage: UNK
     Dates: start: 20180314, end: 20180330
  6. FLUOROURACIL. [Suspect]
     Active Substance: FLUOROURACIL
     Indication: PANCREATIC CARCINOMA METASTATIC
     Dosage: 730 MG, CYCLICAL, BOLUS
     Route: 040
     Dates: start: 20180207, end: 20180328
  7. PEGILODECAKIN [Suspect]
     Active Substance: PEGILODECAKIN
     Dosage: 0.4 MG, CYCLICAL
     Route: 058
     Dates: start: 20180405
  8. METFORMIN [Concomitant]
     Active Substance: METFORMIN HYDROCHLORIDE
     Dosage: UNK
     Dates: end: 20180313
  9. SIMVASTATIN. [Concomitant]
     Active Substance: SIMVASTATIN
     Dosage: UNK
  10. PENIRAMIN [Concomitant]
     Dosage: UNK
     Dates: start: 20180303, end: 20180404
  11. CAMOSTAT MESILATE [Concomitant]
     Active Substance: CAMOSTAT MESYLATE
     Dosage: UNK
     Dates: start: 20180207
  12. GLICLAZIDE [Concomitant]
     Active Substance: GLICLAZIDE
     Dosage: UNK
     Dates: start: 20180314
  13. ZOLPIDEM [Concomitant]
     Active Substance: ZOLPIDEM\ZOLPIDEM TARTRATE
     Dosage: UNK
     Dates: start: 20180221
  14. LOSARTAN POTASSIUM. [Concomitant]
     Active Substance: LOSARTAN POTASSIUM
     Dosage: UNK
     Dates: end: 201802
  15. MAGNESIUM OXIDE. [Concomitant]
     Active Substance: MAGNESIUM OXIDE
     Dosage: UNK
     Dates: start: 20180328
  16. FLUOROURACIL. [Suspect]
     Active Substance: FLUOROURACIL
     Dosage: 4400 MG, CYCLICAL, PUMP
     Route: 042
     Dates: start: 20180207, end: 20180328
  17. FLUOROURACIL. [Suspect]
     Active Substance: FLUOROURACIL
     Dosage: 730 MG, CYCLICAL, BOLUS
     Route: 040
     Dates: start: 20180329, end: 20180329
  18. NALOXONE/OXYCODONE [Concomitant]
     Dosage: UNK
     Dates: start: 20171015
  19. OLMESARTAN MEDOXOMIL. [Concomitant]
     Active Substance: OLMESARTAN MEDOXOMIL
     Dosage: UNK
     Dates: start: 20180221
  20. GRANISETRON HCL [Concomitant]
     Dosage: UNK
     Dates: start: 20170805
  21. PALONOSETRON. [Concomitant]
     Active Substance: PALONOSETRON HYDROCHLORIDE
     Dosage: UNK
     Dates: start: 20180314, end: 20180328
  22. LORAZEPAM. [Concomitant]
     Active Substance: LORAZEPAM
     Dosage: UNK
     Dates: start: 20180118, end: 201802
  23. CALCIUM FOLINATE [Suspect]
     Active Substance: LEUCOVORIN CALCIUM
     Indication: PANCREATIC CARCINOMA METASTATIC
     Dosage: 730 MG, CYCLIC
     Route: 042
     Dates: start: 20180207
  24. DEXTROSE INJECTION [Concomitant]
     Active Substance: DEXTROSE
     Dosage: UNK
     Dates: start: 20180314, end: 20180328
  25. ENCOVER [Concomitant]
     Dosage: UNK
     Dates: start: 20180123, end: 201802
  26. OXALIPLATIN. [Suspect]
     Active Substance: OXALIPLATIN
     Indication: PANCREATIC CARCINOMA METASTATIC
     Dosage: 150 MG, CYCLICAL
     Route: 042
     Dates: start: 20180207
  27. FLUOROURACIL. [Suspect]
     Active Substance: FLUOROURACIL
     Dosage: 4400 MG, CYCLICAL PUMP
     Route: 042
     Dates: start: 20180329, end: 20180329
  28. METOCLOPRAMIDE HCL [Concomitant]
     Active Substance: METOCLOPRAMIDE HYDROCHLORIDE
     Dosage: UNK
     Dates: start: 20180302, end: 20180404
  29. NATURES WAY PRIMADOPHILUS BIFIDUS [Concomitant]
     Dosage: UNK
     Dates: start: 20180302, end: 20180305
  30. TRESTAN [CYANOCOBALAMIN]/00056201 [Concomitant]
     Dosage: UNK
     Dates: start: 20180314

REACTIONS (1)
  - Infusion related reaction [Recovered/Resolved]

NARRATIVE: CASE EVENT DATE: 20180328
